FAERS Safety Report 25889977 (Version 1)
Quarter: 2025Q4

REPORT INFORMATION
  Report Type: Spontaneous
  Country: GB (occurrence: GB)
  Receive Date: 20251007
  Receipt Date: 20251007
  Transmission Date: 20260117
  Serious: Yes (Other)
  Sender: IDORSIA PHARMACEUTICALS
  Company Number: None

PATIENT
  Age: 44 Year
  Sex: Female
  Weight: 119 kg

DRUGS (10)
  1. QUVIVIQ [Suspect]
     Active Substance: DARIDOREXANT
     Indication: Insomnia
     Dosage: 50 MG AT NIGHT
     Route: 048
     Dates: start: 20250901, end: 20250925
  2. ACETAMINOPHEN [Concomitant]
     Active Substance: ACETAMINOPHEN
  3. CYCLIZINE [Concomitant]
     Active Substance: CYCLIZINE
  4. NIFEDIPINE [Concomitant]
     Active Substance: NIFEDIPINE
  5. LANSOPRAZOLE [Concomitant]
     Active Substance: LANSOPRAZOLE
  6. SERTRALINE [Concomitant]
     Active Substance: SERTRALINE HYDROCHLORIDE
  7. SENNA [Concomitant]
     Active Substance: SENNOSIDES
  8. NAPROXEN [Concomitant]
     Active Substance: NAPROXEN
  9. ATORVASTATIN [Concomitant]
     Active Substance: ATORVASTATIN
  10. PROPRANOLOL [Concomitant]
     Active Substance: PROPRANOLOL HYDROCHLORIDE

REACTIONS (1)
  - Contusion [Unknown]

NARRATIVE: CASE EVENT DATE: 20250908
